FAERS Safety Report 7621126-5 (Version None)
Quarter: 2011Q3

REPORT INFORMATION
  Report Type: 
  Country: None (occurrence: None)
  Receive Date: 20110719
  Receipt Date: 20110706
  Transmission Date: 20111222
  Serious: Yes (Other)
  Sender: FDA-Public Use
  Company Number: JP-PFIZER INC-2011050234

PATIENT
  Age: 68 Year
  Sex: Female

DRUGS (12)
  1. MOBIC [Concomitant]
     Indication: BACK PAIN
     Dosage: 10 MG, 1X/DAY
     Route: 048
     Dates: start: 20060526
  2. LISINOPRIL [Concomitant]
     Indication: HYPERTENSION
     Dosage: 10 MG, 1X/DAY
     Route: 048
  3. EVISTA [Concomitant]
     Indication: OSTEOPOROSIS
     Dosage: 60 MG, 1X/DAY
     Route: 048
  4. ALINAMIN F [Concomitant]
     Indication: BACK PAIN
     Dosage: 25 MG, 1X/DAY
     Route: 048
     Dates: start: 20080415
  5. MENEST [Concomitant]
     Indication: PARKINSON'S DISEASE
     Dosage: 300 MG, 1X/DAY
     Route: 048
  6. PRAMIPEXOLE HYDROCHLORIDE MONOHYDRATE [Concomitant]
     Indication: PARKINSON'S DISEASE
     Dosage: 3 MG, 1X/DAY
     Route: 048
     Dates: start: 20070215
  7. MUCOSTA [Concomitant]
     Indication: GASTRITIS PROPHYLAXIS
     Dosage: 300 MG, 1X/DAY
     Route: 048
  8. AMLODIPINE [Suspect]
     Indication: HYPERTENSION
     Dosage: 5 MG, 1X/DAY
     Route: 048
     Dates: end: 20080819
  9. COMTAN [Concomitant]
     Indication: PARKINSON'S DISEASE
     Dosage: 600 MG, 1X/DAY
     Route: 048
     Dates: start: 20070705
  10. MAGNESIUM OXIDE [Concomitant]
     Indication: CONSTIPATION
     Dosage: 1 G, 1X/DAY
     Route: 048
     Dates: start: 20080605
  11. SELEGILINE HYDROCHLORIDE [Concomitant]
     Indication: PARKINSON'S DISEASE
     Dosage: 1.5 MG, 1X/DAY
     Route: 048
     Dates: start: 20070315
  12. LIPITOR [Concomitant]
     Indication: HYPERLIPIDAEMIA
     Dosage: 10 MG, 1X/DAY
     Route: 048
     Dates: start: 20070828

REACTIONS (1)
  - PARKINSONISM [None]
